FAERS Safety Report 6722122-2 (Version None)
Quarter: 2010Q2

REPORT INFORMATION
  Report Type: 
  Country: None (occurrence: None)
  Receive Date: 20100512
  Receipt Date: 20100428
  Transmission Date: 20101027
  Serious: Yes (Life-Threatening)
  Sender: FDA-Public Use
  Company Number: DE-ELI_LILLY_AND_COMPANY-DE201004007936

PATIENT
  Age: 84 Year
  Sex: Female
  Weight: 60 kg

DRUGS (1)
  1. CYMBALTA [Suspect]
     Indication: INCONTINENCE
     Dosage: 60 MG, DAILY (1/D)
     Route: 048
     Dates: start: 20100303, end: 20100310

REACTIONS (5)
  - CONFUSIONAL STATE [None]
  - DIARRHOEA [None]
  - EPISTAXIS [None]
  - HAEMATOMA [None]
  - OEDEMA [None]
